FAERS Safety Report 16601144 (Version 1)
Quarter: 2019Q3

REPORT INFORMATION
  Report Type: Spontaneous
  Country: US (occurrence: US)
  Receive Date: 20190719
  Receipt Date: 20190719
  Transmission Date: 20191004
  Serious: No
  Sender: FDA-Public Use
  Company Number: US-TEVA-2019-US-1079636

PATIENT
  Sex: Male

DRUGS (1)
  1. CLONAZEPAM. [Suspect]
     Active Substance: CLONAZEPAM
     Indication: SLEEP DISORDER
     Dosage: TAKES HALF A TABLET A DAY
     Dates: start: 2016

REACTIONS (3)
  - Therapeutic response unexpected [Unknown]
  - Product prescribing error [Unknown]
  - Product use in unapproved indication [Unknown]
